FAERS Safety Report 7482993-1 (Version None)
Quarter: 2011Q2

REPORT INFORMATION
  Report Type: 
  Country: None (occurrence: None)
  Receive Date: 20110516
  Receipt Date: 20110415
  Transmission Date: 20111010
  Serious: No
  Sender: FDA-Public Use
  Company Number: US-BAYER-2011-033737

PATIENT
  Sex: Female
  Weight: 63 kg

DRUGS (11)
  1. MULTI-VITAMINS [Concomitant]
  2. FISH OIL [Concomitant]
  3. VITAMIN D [Concomitant]
  4. CALCIUM [CALCIUM CARBONATE] [Concomitant]
  5. LAMICTAL [Concomitant]
  6. ANTIDEPRESSANTS [Concomitant]
  7. TOPROL-XL [Concomitant]
  8. VITAMIN E [Concomitant]
  9. ALEVE (CAPLET) [Suspect]
     Indication: PRODUCT USED FOR UNKNOWN INDICATION
     Dosage: 1 DF, BID
     Route: 048
     Dates: start: 20110401
  10. ABILIFY [Concomitant]
  11. ANTIHYPERTENSIVES [Concomitant]

REACTIONS (2)
  - ERYTHEMA [None]
  - PRURITUS GENERALISED [None]
